FAERS Safety Report 12067850 (Version 1)
Quarter: 2016Q1

REPORT INFORMATION
  Report Type: Spontaneous
  Country: US (occurrence: US)
  Receive Date: 20160211
  Receipt Date: 20160211
  Transmission Date: 20160526
  Serious: No
  Sender: FDA-Public Use
  Company Number: US-SMITH AND NEPHEW, INC-2015SMT00102

PATIENT
  Age: 50 Year
  Sex: Male
  Weight: 82.54 kg

DRUGS (3)
  1. IBUPROFEN. [Concomitant]
     Active Substance: IBUPROFEN
     Dosage: 800 MG, 4X/DAY
  2. REGRANEX [Suspect]
     Active Substance: BECAPLERMIN
     Indication: SKIN ULCER
     Dosage: 1 DOSAGE UNITS, 1X/DAY
     Route: 061
     Dates: start: 201504, end: 20150522
  3. REGRANEX [Suspect]
     Active Substance: BECAPLERMIN
     Dosage: 1 DOSAGE UNITS, UNK
     Route: 061
     Dates: start: 20150523

REACTIONS (3)
  - Application site pain [Recovered/Resolved]
  - Peripheral swelling [Recovered/Resolved]
  - Off label use [Unknown]

NARRATIVE: CASE EVENT DATE: 201504
